FAERS Safety Report 8267982-1 (Version None)
Quarter: 2012Q2

REPORT INFORMATION
  Report Type: 
  Country: None (occurrence: None)
  Receive Date: 20120409
  Receipt Date: 20120326
  Transmission Date: 20120825
  Serious: Yes (Hospitalization, Congenital Anomaly, Other)
  Sender: FDA-Public Use
  Company Number: DE-MYLANLABS-2012S1006415

PATIENT
  Age: 0 Year
  Sex: Male
  Weight: 2.3 kg

DRUGS (3)
  1. PREDNISONE TAB [Suspect]
     Dosage: 5 [MG/D ]
     Route: 064
  2. SULFASALAZINE [Suspect]
     Route: 064
  3. AZATHIOPRINE [Suspect]
     Dosage: 150 [MG/D ]
     Route: 064

REACTIONS (7)
  - NEONATAL RESPIRATORY DEPRESSION [None]
  - MATERNAL EXPOSURE DURING PREGNANCY [None]
  - LEUKOPENIA NEONATAL [None]
  - SMALL FOR DATES BABY [None]
  - CONGENITAL TRICUSPID VALVE INCOMPETENCE [None]
  - ATRIAL SEPTAL DEFECT [None]
  - NEUTROPENIA NEONATAL [None]
